FAERS Safety Report 16227231 (Version 2)
Quarter: 2019Q2

REPORT INFORMATION
  Report Type: Spontaneous
  Country: CA (occurrence: CA)
  Receive Date: 20190423
  Receipt Date: 20190430
  Transmission Date: 20190711
  Serious: Yes (Other)
  Sender: FDA-Public Use
  Company Number: CA-ORION CORPORATION ORION PHARMA-TREX2016-0782

PATIENT
  Age: 32 Year
  Sex: Female

DRUGS (22)
  1. METHOTREXATE (TRADE NAME UNKNOWN) [Suspect]
     Active Substance: METHOTREXATE
     Dosage: STRENGTH: 2.5 MG
     Route: 048
     Dates: start: 20150617
  2. METHOTREXATE (TRADE NAME UNKNOWN) [Suspect]
     Active Substance: METHOTREXATE
     Route: 058
     Dates: start: 20140910
  3. SULFASALAZINE. [Suspect]
     Active Substance: SULFASALAZINE
     Indication: RHEUMATOID ARTHRITIS
     Dosage: 500 MG AND UPTO 1 G TWICE A DAY
     Route: 065
     Dates: start: 200003, end: 200308
  4. ATIVAN [Concomitant]
     Active Substance: LORAZEPAM
     Route: 065
  5. HYDROMORPH CONTIN [Concomitant]
     Active Substance: HYDROMORPHONE
     Route: 065
  6. ACTEMRA [Suspect]
     Active Substance: TOCILIZUMAB
     Indication: RHEUMATOID ARTHRITIS
     Route: 042
     Dates: start: 2010, end: 2015
  7. TRAZODONE [Concomitant]
     Active Substance: TRAZODONE HYDROCHLORIDE
     Route: 065
  8. METHOTREXATE (TRADE NAME UNKNOWN) [Suspect]
     Active Substance: METHOTREXATE
     Indication: RHEUMATOID ARTHRITIS
     Dosage: STRENGTH: 2.5 MG
     Route: 048
     Dates: start: 20120412
  9. LEFLUNOMIDE. [Suspect]
     Active Substance: LEFLUNOMIDE
     Indication: RHEUMATOID ARTHRITIS
     Route: 065
     Dates: start: 200408, end: 200409
  10. FOLIC ACID. [Concomitant]
     Active Substance: FOLIC ACID
     Route: 065
  11. IMOVANE [Concomitant]
     Active Substance: ZOPICLONE
     Route: 065
  12. METHOTREXATE (TRADE NAME UNKNOWN) [Suspect]
     Active Substance: METHOTREXATE
     Route: 058
     Dates: start: 200308
  13. XELJANZ [Suspect]
     Active Substance: TOFACITINIB CITRATE
     Route: 048
  14. HUMIRA [Suspect]
     Active Substance: ADALIMUMAB
     Indication: RHEUMATOID ARTHRITIS
     Route: 058
     Dates: start: 2005, end: 2010
  15. DICLECTIN [Concomitant]
     Active Substance: DOXYLAMINE SUCCINATE\PYRIDOXINE HYDROCHLORIDE
     Route: 065
  16. METHOTREXATE (TRADE NAME UNKNOWN) [Suspect]
     Active Substance: METHOTREXATE
     Dosage: STRENGTH: 2.5 MG
     Route: 048
     Dates: start: 20150415
  17. PREDNISONE. [Concomitant]
     Active Substance: PREDNISONE
     Route: 065
  18. METHOTREXATE (TRADE NAME UNKNOWN) [Suspect]
     Active Substance: METHOTREXATE
     Dosage: STRENGTH: 2.5 MG
     Route: 048
     Dates: start: 20130509
  19. METHOTREXATE (TRADE NAME UNKNOWN) [Suspect]
     Active Substance: METHOTREXATE
     Dosage: STRENGTH: 2.5 MG
     Route: 048
     Dates: start: 20130808
  20. DILAUDID [Concomitant]
     Active Substance: HYDROMORPHONE HYDROCHLORIDE
     Route: 065
  21. XELJANZ [Suspect]
     Active Substance: TOFACITINIB CITRATE
     Indication: RHEUMATOID ARTHRITIS
     Route: 048
     Dates: start: 20150109, end: 201501
  22. PROLIA [Concomitant]
     Active Substance: DENOSUMAB
     Route: 065

REACTIONS (8)
  - Postoperative wound infection [Not Recovered/Not Resolved]
  - Drug ineffective [Unknown]
  - Upper limb fracture [Unknown]
  - Rheumatoid arthritis [Recovering/Resolving]
  - Migraine [Not Recovered/Not Resolved]
  - Loss of personal independence in daily activities [Unknown]
  - Osteoporosis [Unknown]
  - Insomnia [Unknown]

NARRATIVE: CASE EVENT DATE: 201502
